FAERS Safety Report 6460981-1 (Version None)
Quarter: 2009Q4

REPORT INFORMATION
  Report Type: 
  Country: None (occurrence: None)
  Receive Date: 20091130
  Receipt Date: 20091120
  Transmission Date: 20100525
  Serious: Yes (Other)
  Sender: FDA-Public Use
  Company Number: A0822119A

PATIENT
  Sex: Female

DRUGS (1)
  1. LAMICTAL XR [Suspect]
     Dosage: 200MG TWICE PER DAY
     Route: 048
     Dates: start: 20090501

REACTIONS (7)
  - CHOKING [None]
  - CONVULSION [None]
  - DIZZINESS [None]
  - DRUG INEFFECTIVE [None]
  - DYSGEUSIA [None]
  - FOAMING AT MOUTH [None]
  - MEMORY IMPAIRMENT [None]
